FAERS Safety Report 19283515 (Version 2)
Quarter: 2021Q2

REPORT INFORMATION
  Report Type: Report from Study
  Country: AR (occurrence: AR)
  Receive Date: 20210520
  Receipt Date: 20210609
  Transmission Date: 20210717
  Serious: Yes (Hospitalization)
  Sender: FDA-Public Use
  Company Number: AR-JNJFOC-20210527886

PATIENT
  Age: 62 Year
  Sex: Male
  Weight: 96 kg

DRUGS (1)
  1. REMICADE [Suspect]
     Active Substance: INFLIXIMAB
     Indication: RHEUMATOID ARTHRITIS
     Route: 042
     Dates: start: 20140220

REACTIONS (1)
  - COVID-19 pneumonia [Not Recovered/Not Resolved]

NARRATIVE: CASE EVENT DATE: 20210426
